FAERS Safety Report 16085334 (Version 1)
Quarter: 2019Q1

REPORT INFORMATION
  Report Type: Spontaneous
  Country: CZ (occurrence: CZ)
  Receive Date: 20190318
  Receipt Date: 20190318
  Transmission Date: 20190418
  Serious: Yes (Hospitalization)
  Sender: FDA-Public Use
  Company Number: CZ-SEPTODONT-201905102

PATIENT
  Age: 22 Year
  Sex: Male

DRUGS (1)
  1. SEPTANEST S ADRENALINEM 1:200000 [Suspect]
     Active Substance: ARTICAINE HYDROCHLORIDE\EPINEPHRINE BITARTRATE
     Indication: DENTAL CARIES
     Route: 004
     Dates: start: 20190207, end: 20190207

REACTIONS (5)
  - Hypertension [Recovered/Resolved]
  - Chest pain [Unknown]
  - Dyspnoea [Unknown]
  - Flushing [Unknown]
  - Hypersensitivity [Unknown]

NARRATIVE: CASE EVENT DATE: 20190207
